FAERS Safety Report 9699314 (Version 1)
Quarter: 2013Q4

REPORT INFORMATION
  Report Type: Spontaneous
  Country: US (occurrence: US)
  Receive Date: 20131120
  Receipt Date: 20131120
  Transmission Date: 20140711
  Serious: No
  Sender: FDA-Public Use
  Company Number: US-GILEAD-2008-0015537

PATIENT
  Age: 46 Year
  Sex: Female
  Weight: 91.17 kg

DRUGS (11)
  1. LETAIRIS [Suspect]
     Indication: PULMONARY ARTERIAL HYPERTENSION
     Route: 048
     Dates: start: 20071025
  2. ZETIA [Concomitant]
     Indication: MEDICAL DIET
     Route: 048
  3. ACYCLOVIR [Concomitant]
     Indication: HERPES ZOSTER
     Route: 048
  4. ACYCLOVIR [Concomitant]
     Indication: HERPES VIRUS INFECTION
  5. COUMADIN [Concomitant]
     Indication: ANTICOAGULANT THERAPY
     Route: 048
  6. NORVASC [Concomitant]
     Indication: ESSENTIAL HYPERTENSION
     Route: 048
  7. KCL [Concomitant]
     Indication: SUPPLEMENTATION THERAPY
     Route: 048
  8. LASIX [Concomitant]
     Indication: PULMONARY ARTERIAL HYPERTENSION
     Route: 048
  9. KALETRA [Concomitant]
     Indication: HIV INFECTION
     Route: 048
  10. COMBIVIR [Concomitant]
     Indication: HIV INFECTION
     Route: 048
  11. ALBUTEROL SULFATE [Concomitant]
     Indication: ASTHMA
     Route: 055

REACTIONS (2)
  - Mood swings [Not Recovered/Not Resolved]
  - Hot flush [Not Recovered/Not Resolved]
